FAERS Safety Report 6851521-3 (Version None)
Quarter: 2010Q3

REPORT INFORMATION
  Report Type: 
  Country: None (occurrence: None)
  Receive Date: 20100717
  Receipt Date: 20080122
  Transmission Date: 20110219
  Serious: No
  Sender: FDA-Public Use
  Company Number: US-PFIZER INC-2008007375

PATIENT
  Sex: Female
  Weight: 55 kg

DRUGS (3)
  1. CHANTIX [Suspect]
     Indication: SMOKING CESSATION THERAPY
     Dates: start: 20080115
  2. PAXIL [Concomitant]
  3. SYNTHROID [Concomitant]
     Indication: THYROID DISORDER

REACTIONS (3)
  - DISORIENTATION [None]
  - DIZZINESS [None]
  - SOMNOLENCE [None]
